FAERS Safety Report 13742932 (Version 1)
Quarter: 2017Q3

REPORT INFORMATION
  Report Type: Spontaneous
  Country: US (occurrence: US)
  Receive Date: 20170711
  Receipt Date: 20170711
  Transmission Date: 20171127
  Serious: No
  Sender: FDA-Public Use
  Company Number: US-BRISTOL-MYERS SQUIBB COMPANY-BMS-2017-060433

PATIENT
  Sex: Female

DRUGS (1)
  1. ELIQUIS [Suspect]
     Active Substance: APIXABAN
     Indication: CEREBROVASCULAR ACCIDENT PROPHYLAXIS
     Dosage: 5 MG, BID
     Route: 048

REACTIONS (8)
  - Headache [Unknown]
  - Fatigue [Unknown]
  - Vomiting [Unknown]
  - Hypersomnia [Unknown]
  - Faeces discoloured [Unknown]
  - Depression [Unknown]
  - Abdominal pain upper [Unknown]
  - Feeling abnormal [Unknown]
